FAERS Safety Report 20088531 (Version 1)
Quarter: 2021Q4

REPORT INFORMATION
  Report Type: Spontaneous
  Country: US (occurrence: US)
  Receive Date: 20211119
  Receipt Date: 20211119
  Transmission Date: 20220303
  Serious: No
  Sender: FDA-Public Use
  Company Number: US-BEH-2021138453

PATIENT
  Sex: Female

DRUGS (4)
  1. HIZENTRA [Suspect]
     Active Substance: HUMAN IMMUNOGLOBULIN G
     Indication: Non-Hodgkin^s lymphoma
     Dosage: 10 GRAM, QW
     Route: 058
     Dates: start: 20200118
  2. EPINEPHRINE [Concomitant]
     Active Substance: EPINEPHRINE
  3. IMURAN [Concomitant]
     Active Substance: AZATHIOPRINE
  4. LIDOCAINE AND PRILOCAINE [Concomitant]
     Active Substance: LIDOCAINE\PRILOCAINE

REACTIONS (6)
  - Infusion site hypersensitivity [Unknown]
  - Recalled product administered [Unknown]
  - Infusion site erythema [Unknown]
  - Recalled product administered [Unknown]
  - No adverse event [Unknown]
  - Off label use [Unknown]
